FAERS Safety Report 10808346 (Version 1)
Quarter: 2015Q1

REPORT INFORMATION
  Report Type: Report from Study
  Country: US (occurrence: US)
  Receive Date: 20150217
  Receipt Date: 20150217
  Transmission Date: 20150721
  Serious: No
  Sender: FDA-Public Use
  Company Number: US-ABBVIE-14K-163-1254021-00

PATIENT
  Age: 49 Year
  Sex: Female

DRUGS (7)
  1. BENAZEPRIL [Concomitant]
     Active Substance: BENAZEPRIL\BENAZEPRIL HYDROCHLORIDE
     Indication: HYPERTENSION
  2. METFORMIN [Concomitant]
     Active Substance: METFORMIN HYDROCHLORIDE
     Indication: DIABETES MELLITUS
  3. HUMIRA [Suspect]
     Active Substance: ADALIMUMAB
     Dates: start: 20140423
  4. HUMIRA [Suspect]
     Active Substance: ADALIMUMAB
     Dates: start: 20140503
  5. HUMIRA [Suspect]
     Active Substance: ADALIMUMAB
     Indication: PUSTULAR PSORIASIS
     Dates: start: 20140416, end: 20140416
  6. PAROXETINE [Concomitant]
     Active Substance: PAROXETINE\PAROXETINE HYDROCHLORIDE
     Indication: ANXIETY
  7. GLIPERID [Concomitant]
     Indication: DIABETES MELLITUS

REACTIONS (5)
  - Pain [Not Recovered/Not Resolved]
  - Rash pustular [Not Recovered/Not Resolved]
  - Skin fissures [Not Recovered/Not Resolved]
  - Visual impairment [Not Recovered/Not Resolved]
  - Drug ineffective [Unknown]

NARRATIVE: CASE EVENT DATE: 2014
